FAERS Safety Report 8965643 (Version 1)
Quarter: 2012Q4

REPORT INFORMATION
  Report Type: Spontaneous
  Country: US (occurrence: None)
  Receive Date: 20121212
  Receipt Date: 20121212
  Transmission Date: 20130627
  Serious: No
  Sender: FDA-Public Use
  Company Number: None

PATIENT
  Sex: Female

DRUGS (2)
  1. AMBIEN [Suspect]
     Dosage: po hs
     Route: 048
  2. TIZANIDINE HYDROCHLORIDE [Concomitant]

REACTIONS (1)
  - Somnambulism [None]
